FAERS Safety Report 8801275 (Version 3)
Quarter: 2012Q4

REPORT INFORMATION
  Report Type: 
  Country: US (occurrence: US)
  Receive Date: 20120921
  Receipt Date: 20121218
  Transmission Date: 20130627
  Serious: Yes (Other)
  Sender: FDA-Public Use
  Company Number: US-PFIZER INC-2012232488

PATIENT
  Age: 84 Year
  Sex: Female
  Weight: 68.93 kg

DRUGS (15)
  1. HYDROCHLOROTHIAZIDE/SPIRONOLACTONE [Suspect]
     Indication: ANKLE SWELLING
     Dosage: 1 DF, 1x/day
     Route: 048
     Dates: start: 201205
  2. HYDROCHLOROTHIAZIDE/SPIRONOLACTONE [Suspect]
     Dosage: one tablet (Spironolactone 25/ Hydrochlorothiazide 25) in the AM
  3. OMEGA-3 FISH OIL [Suspect]
     Dosage: 1 DF, 1x/day
  4. CALTRATE WITH VITAMIN D [Suspect]
     Dosage: 2 DF/chewable tablets in morning, 1x/day
  5. CENTRUM SILVER [Suspect]
     Dosage: 1 DF, 1x/day
  6. OMEPRAZOLE [Suspect]
     Dosage: 20 mg, 1x/day
  7. SUPER B COMPLEX [Suspect]
     Dosage: 1 DF, 1x/day
  8. BIOTIN [Suspect]
     Indication: DRUG USE FOR UNKNOWN INDICATION
     Dosage: 5 mg, 1x/day (AM)
  9. BIOTIN [Suspect]
     Dosage: 500 ug, UNK
  10. COLACE [Suspect]
     Dosage: 200 mg, 1x/day
  11. COLACE [Suspect]
     Dosage: 100 mg, 2x/day in the AM and PM
  12. METOPROLOL [Suspect]
     Indication: BLOOD PRESSURE HIGH
     Dosage: 0.5 DF, 1x/day
  13. PRAVASTATIN SODIUM [Suspect]
     Indication: HIGH CHOLESTEROL
     Dosage: 1 DF, 1x/day
  14. ASPIRIN ^BAYER^ [Suspect]
     Dosage: 325 mg, 1x/day
  15. METAMUCIL [Suspect]
     Dosage: 3 DF, 1x/day

REACTIONS (2)
  - Loss of consciousness [Unknown]
  - Self-medication [None]
